FAERS Safety Report 9684677 (Version 2)
Quarter: 2013Q4

REPORT INFORMATION
  Report Type: Report from Study
  Country: US (occurrence: US)
  Receive Date: 20131112
  Receipt Date: 20131112
  Transmission Date: 20140711
  Serious: Yes (Other)
  Sender: FDA-Public Use
  Company Number: US-ROCHE-1212708

PATIENT
  Sex: Female

DRUGS (14)
  1. ZELBORAF [Suspect]
     Indication: METASTATIC MALIGNANT MELANOMA
     Route: 048
     Dates: start: 20120211
  2. ZELBORAF [Suspect]
     Route: 065
  3. LUCENTIS [Suspect]
     Indication: RETINAL VEIN OCCLUSION
     Route: 050
     Dates: start: 20120612, end: 20130327
  4. LUCENTIS [Suspect]
     Indication: RETINAL VEIN OCCLUSION
  5. MOTRIN [Concomitant]
     Indication: PYREXIA
     Route: 048
  6. ADVIL [Concomitant]
     Indication: PYREXIA
     Route: 048
  7. PEPCID [Concomitant]
     Indication: DYSPEPSIA
     Route: 048
  8. LOMOTIL (UNITED STATES) [Concomitant]
     Indication: DIARRHOEA
     Route: 048
  9. NEXAVAR [Concomitant]
  10. SYNTHROID [Concomitant]
     Indication: HYPOTHYROIDISM
     Route: 065
  11. AMLODIPINE [Concomitant]
     Indication: HYPERTENSION
  12. ALPHAGAN [Concomitant]
     Route: 047
  13. POTASSIUM CHLORIDE [Concomitant]
     Route: 048
  14. HYDROCHLOROTHIAZIDE [Concomitant]
     Route: 048

REACTIONS (16)
  - Diarrhoea [Unknown]
  - Pyrexia [Recovered/Resolved]
  - Blister [Recovered/Resolved]
  - Local swelling [Recovered/Resolved]
  - Dyspepsia [Recovering/Resolving]
  - Abdominal distension [Not Recovered/Not Resolved]
  - Flatulence [Not Recovered/Not Resolved]
  - Retinal vein occlusion [Not Recovered/Not Resolved]
  - Ocular hyperaemia [Recovered/Resolved]
  - Vision blurred [Not Recovered/Not Resolved]
  - Vitreous floaters [Not Recovered/Not Resolved]
  - Abdominal discomfort [Recovering/Resolving]
  - Dehydration [Recovered/Resolved]
  - Nausea [Recovering/Resolving]
  - Decreased appetite [Recovered/Resolved]
  - Retinal vein occlusion [Not Recovered/Not Resolved]
